FAERS Safety Report 9666059 (Version 2)
Quarter: 2013Q4

REPORT INFORMATION
  Report Type: Spontaneous
  Country: US (occurrence: US)
  Receive Date: 20131104
  Receipt Date: 20131104
  Transmission Date: 20140711
  Serious: Yes (Hospitalization, Other)
  Sender: FDA-Public Use
  Company Number: US-BIOGENIDEC-173722

PATIENT
  Age: 55 Year
  Sex: Male
  Weight: 95 kg

DRUGS (25)
  1. AVONEX [Suspect]
     Indication: MULTIPLE SCLEROSIS
     Route: 030
     Dates: start: 20010630, end: 20030526
  2. CELEBREX [Concomitant]
     Dates: end: 200306
  3. ZOCOR [Concomitant]
  4. PRIMROSE OIL [Concomitant]
  5. FISH OIL [Concomitant]
  6. VITAMIN E [Concomitant]
  7. VITAMIN C [Concomitant]
  8. TYLENOL [Concomitant]
  9. GLUTOFAC [Concomitant]
  10. GINKGO BILOBA [Concomitant]
  11. ASPIR [Concomitant]
     Route: 048
  12. ANDRO GEL [Concomitant]
  13. CRESTOR [Concomitant]
     Route: 048
     Dates: start: 20110524
  14. METHYLPHENIDATE HCL [Concomitant]
     Route: 048
     Dates: start: 20111102
  15. PRIMIDONE [Concomitant]
     Route: 048
     Dates: start: 20131023
  16. PROPRANOLOL HCL [Concomitant]
     Route: 048
  17. PROPRANOLOL HCL [Concomitant]
     Route: 048
  18. PROSCAR [Concomitant]
     Route: 048
  19. PROTONIX [Concomitant]
     Route: 048
  20. SINGULAIR [Concomitant]
     Route: 048
  21. COMPAZINE CPCR [Concomitant]
  22. LEVODOPA [Concomitant]
     Indication: TREMOR
  23. COPAXONE [Concomitant]
     Route: 058
  24. VESICARE [Concomitant]
     Route: 048
  25. AXIRON [Concomitant]

REACTIONS (6)
  - Arteritis [Recovered/Resolved]
  - Temporal arteritis [Unknown]
  - Prostatitis [Recovered/Resolved]
  - Tenosynovitis [Unknown]
  - Hepatic enzyme increased [Not Recovered/Not Resolved]
  - Haemoglobin decreased [Recovered/Resolved]
